FAERS Safety Report 6620147-9 (Version None)
Quarter: 2010Q1

REPORT INFORMATION
  Report Type: 
  Country: None (occurrence: None)
  Receive Date: 20100309
  Receipt Date: 20100225
  Transmission Date: 20100710
  Serious: Yes (Other)
  Sender: FDA-Public Use
  Company Number: US-ELI_LILLY_AND_COMPANY-US201002007185

PATIENT
  Age: 51 Year
  Sex: Female

DRUGS (2)
  1. GEMZAR [Suspect]
     Indication: BREAST CANCER METASTATIC
  2. CARBOPLATIN [Concomitant]
     Indication: BREAST CANCER METASTATIC
     Dates: end: 20100101

REACTIONS (1)
  - ABDOMINAL DISTENSION [None]
